FAERS Safety Report 22329904 (Version 1)
Quarter: 2023Q2

REPORT INFORMATION
  Report Type: Other
  Country: US (occurrence: None)
  Receive Date: 20230517
  Receipt Date: 20230517
  Transmission Date: 20230722
  Serious: No
  Sender: FDA-Public Use
  Company Number: US-ROCHE-3297333

PATIENT
  Age: 68 Year
  Sex: Female

DRUGS (9)
  1. TOCILIZUMAB [Suspect]
     Active Substance: TOCILIZUMAB
     Indication: COVID-19
     Route: 065
  2. BICTEGRAVIR [Concomitant]
     Active Substance: BICTEGRAVIR
  3. EMTRICITABINE [Concomitant]
     Active Substance: EMTRICITABINE
  4. TENOFOVIR ALAFENAMIDE [Concomitant]
     Active Substance: TENOFOVIR ALAFENAMIDE
  5. HYDROXYCHLOROQUINE [Concomitant]
     Active Substance: HYDROXYCHLOROQUINE
  6. AZITHROMYCIN [Concomitant]
     Active Substance: AZITHROMYCIN
  7. TACROLIMUS [Concomitant]
     Active Substance: TACROLIMUS
  8. PREDNISONE [Concomitant]
     Active Substance: PREDNISONE
  9. DOXORUBICIN HYDROCHLORIDE [Concomitant]
     Active Substance: DOXORUBICIN HYDROCHLORIDE
     Indication: Kaposi^s sarcoma
     Dosage: POSTTRANSPLANT/LAST CHEMOTHERAPY (LIPOSOMAL DOXORUBICIN) 5 WKS PRE-COVID DIAGNOSIS

REACTIONS (2)
  - Off label use [Unknown]
  - No adverse event [Unknown]
